FAERS Safety Report 20151645 (Version 1)
Quarter: 2021Q4

REPORT INFORMATION
  Report Type: Spontaneous
  Country: DE (occurrence: DE)
  Receive Date: 20211206
  Receipt Date: 20211206
  Transmission Date: 20220303
  Serious: Yes (Other)
  Sender: FDA-Public Use
  Company Number: DE-ORGANON-O2111DEU003178

PATIENT
  Age: 73 Year
  Sex: Male

DRUGS (1)
  1. EZETIMIBE\SIMVASTATIN [Suspect]
     Active Substance: EZETIMIBE\SIMVASTATIN
     Dosage: UNK
     Route: 048

REACTIONS (4)
  - Myocardial infarction [Unknown]
  - Full blood count abnormal [Recovered/Resolved]
  - Liver disorder [Unknown]
  - Localised infection [Unknown]

NARRATIVE: CASE EVENT DATE: 20200301
